FAERS Safety Report 10668250 (Version 3)
Quarter: 2015Q2

REPORT INFORMATION
  Report Type: Spontaneous
  Country: US (occurrence: US)
  Receive Date: 20141222
  Receipt Date: 20150630
  Transmission Date: 20150821
  Serious: Yes (Death, Other)
  Sender: FDA-Public Use
  Company Number: US-PFIZER INC-2014345441

PATIENT
  Age: 66 Year
  Sex: Male
  Weight: 69 kg

DRUGS (42)
  1. COLACE [Concomitant]
     Active Substance: DOCUSATE SODIUM
     Dosage: 100 MG, UNK
  2. MEGACE [Concomitant]
     Active Substance: MEGESTROL ACETATE
     Dosage: 400 MG, UNK
     Route: 048
  3. ZOFRAN [Concomitant]
     Active Substance: ONDANSETRON HYDROCHLORIDE
     Dosage: 8 MG, 3X/DAY (AS NEEDED)
     Route: 048
  4. AZULFIDINE EN-TABS [Concomitant]
     Active Substance: SULFASALAZINE
     Dosage: 500 MG, 2X/DAY
     Route: 048
  5. NS INFUSION [Concomitant]
     Dosage: 500 ML, UNK
     Route: 040
  6. NORCO [Concomitant]
     Active Substance: ACETAMINOPHEN\HYDROCODONE BITARTRATE
     Dosage: 1 DF, 2X/DAY
     Route: 048
  7. XGEVA [Concomitant]
     Active Substance: DENOSUMAB
     Indication: HYPERCALCAEMIA
     Dosage: UNK, MONTHLY (INJECT UNDER THE SKIN)
     Route: 058
  8. COMPAZINE [Concomitant]
     Active Substance: PROCHLORPERAZINE MALEATE
     Indication: NAUSEA
     Dosage: 10 MG, 4X/DAY (AS NEEDED)
     Route: 048
  9. NS INFUSION [Concomitant]
     Dosage: 1000 ML, UNK
     Route: 040
  10. MOM [Concomitant]
     Active Substance: MAGNESIUM HYDROXIDE
     Dosage: 15 ML
     Route: 048
  11. DULCOLAX [Concomitant]
     Active Substance: BISACODYL OR DOCUSATE SODIUM
     Dosage: 10 MG, UNK
  12. NORCO [Concomitant]
     Active Substance: ACETAMINOPHEN\HYDROCODONE BITARTRATE
     Indication: BACK PAIN
     Dosage: 3 DF, DAILY
  13. HYGROTON [Concomitant]
     Active Substance: CHLORTHALIDONE
     Dosage: UNK (1/2 TABLET DAILY)
  14. CORTEF [Concomitant]
     Active Substance: HYDROCORTISONE
     Dosage: 5 MG, 2X/DAY (2-3 TABLETS)
     Route: 048
  15. NORVASC [Concomitant]
     Active Substance: AMLODIPINE BESYLATE
     Dosage: 10 MG, DAILY (EVERY MORNING)
     Route: 048
  16. INLYTA [Suspect]
     Active Substance: AXITINIB
     Indication: METASTATIC RENAL CELL CARCINOMA
     Dosage: 5 MG, 2X/DAY (TAKE 1 TAB BY MOUTH 2 TIMES A DAY)
     Route: 048
     Dates: start: 20140723, end: 20141107
  17. NORCO [Concomitant]
     Active Substance: ACETAMINOPHEN\HYDROCODONE BITARTRATE
     Dosage: 1 DF, AS NEEDED (5-325 MG TABLET)
     Route: 048
  18. NORCO [Concomitant]
     Active Substance: ACETAMINOPHEN\HYDROCODONE BITARTRATE
     Dosage: 1 DF, 4X/DAY
     Route: 048
  19. FOLVITE [Concomitant]
     Active Substance: FOLIC ACID
     Dosage: 1 MG, DAILY (TAKE 1 MG BY MOUTH EVERY MORNING)
     Route: 048
  20. NS INFUSION [Concomitant]
     Route: 042
  21. SF 5000 PLUS [Concomitant]
     Active Substance: SODIUM FLUORIDE
     Dosage: 1000 MG, UNK
     Route: 048
  22. SYNTHROID [Concomitant]
     Active Substance: LEVOTHYROXINE SODIUM
     Dosage: 137 ?G, 1X/DAY (EVERY MORNING BEFORE BREAKFAST)
     Route: 048
  23. XYLOCAINE [Concomitant]
     Active Substance: LIDOCAINE HYDROCHLORIDE
     Indication: PAIN
     Dosage: UNK, AS NEEDED
  24. ACTIGALL [Concomitant]
     Active Substance: URSODIOL
     Dosage: 500 MG, 2X/DAY (WITH MEALS)
     Route: 048
  25. DILAUDID [Concomitant]
     Active Substance: HYDROMORPHONE HYDROCHLORIDE
     Dosage: 0.5-1 MG
  26. MIRALAX [Concomitant]
     Active Substance: POLYETHYLENE GLYCOL 3350
     Dosage: 17 G, (PACKET)
  27. LOPRESSOR [Concomitant]
     Active Substance: METOPROLOL TARTRATE
     Dosage: 100 MG, 2X/DAY
     Route: 048
  28. COLACE [Concomitant]
     Active Substance: DOCUSATE SODIUM
     Dosage: 250 MG, AS NEEDED
     Route: 048
  29. ZOFRAN [Concomitant]
     Active Substance: ONDANSETRON HYDROCHLORIDE
     Dosage: 4 MG, UNK
  30. KEFLEX [Concomitant]
     Active Substance: CEPHALEXIN
     Dosage: 500 MG, 2X/DAY
     Route: 048
  31. PROTONIX [Concomitant]
     Active Substance: PANTOPRAZOLE SODIUM
     Dosage: 40 MG
  32. HYGROTON [Concomitant]
     Active Substance: CHLORTHALIDONE
     Dosage: 25 MG, DAILY
     Route: 048
  33. CORTEF [Concomitant]
     Active Substance: HYDROCORTISONE
     Dosage: UNK (10-15 MG) 15 MG IN THE MORNING AND 10 MG IN THE AFTERNOON
  34. MEGACE [Concomitant]
     Active Substance: MEGESTROL ACETATE
     Dosage: 10 ML, DAILY (400 MG/ 10 ML (40 MG/ML) SUSP)DAILY IN THE EVENING
     Route: 048
  35. SENNA LAXATIVE [Concomitant]
     Active Substance: SENNOSIDES A AND B
     Dosage: 1 DF, AS NEEDED (TAKE 1 TAB BY MOUTH DAILY AS NEEDED)
     Route: 048
  36. NEXIUM [Concomitant]
     Active Substance: ESOMEPRAZOLE MAGNESIUM
     Dosage: 40 MG, DAILY (40 MG EVERY MORNING BEFORE BREAKFAST)
     Route: 048
  37. SULFAZINE EC [Concomitant]
     Active Substance: SULFASALAZINE
     Dosage: 1000 MG, UNK
     Route: 048
  38. FLOMAX [Concomitant]
     Active Substance: TAMSULOSIN HYDROCHLORIDE
     Dosage: 0.4 MG, DAILY (EVENING)
     Route: 048
  39. CALCIUM [Concomitant]
     Active Substance: CALCIUM
     Dosage: 1 DF, DAILY (IN THE EVENING)
     Route: 048
  40. COMPAZINE [Concomitant]
     Active Substance: PROCHLORPERAZINE MALEATE
     Indication: VOMITING
  41. ONDANSETRON HCL [Concomitant]
     Active Substance: ONDANSETRON HYDROCHLORIDE
     Dosage: (4 MG/ 2 ML INJ SOLU)
  42. LOVENOX [Concomitant]
     Active Substance: ENOXAPARIN SODIUM
     Dosage: 40 MG, (SYRINGE)

REACTIONS (15)
  - Decreased appetite [Unknown]
  - Disease progression [Unknown]
  - Renal cell carcinoma [Unknown]
  - Hypothyroidism [Unknown]
  - Hepatic failure [Unknown]
  - Lactic acidosis [Unknown]
  - Hyperbilirubinaemia [Unknown]
  - Impaired healing [Unknown]
  - Hepatic encephalopathy [Unknown]
  - Cholestasis [Unknown]
  - Coagulopathy [Unknown]
  - Secondary adrenocortical insufficiency [Unknown]
  - Death [Fatal]
  - Fatigue [Unknown]
  - Tachycardia [Unknown]

NARRATIVE: CASE EVENT DATE: 20140906
